FAERS Safety Report 8262700 (Version 3)
Quarter: 2014Q2

REPORT INFORMATION
  Report Type: Spontaneous
  Country: GB (occurrence: GB)
  Receive Date: 20111124
  Receipt Date: 20131018
  Transmission Date: 20141212
  Serious: Yes (Other)
  Sender: FDA-Public Use
  Company Number: GB-PFIZER INC-2011284061

PATIENT
  Age: 66 Year
  Sex: Male
  Weight: 80 kg

DRUGS (6)
  1. METHYLPREDNISOLONE SODIUM SUCCINATE [Suspect]
     Dosage: 100 MG, UNK
     Route: 042
     Dates: start: 20111017, end: 20111017
  2. RITUXIMAB [Suspect]
     Indication: RHEUMATOID ARTHRITIS
     Dosage: 27 ML, UNK
     Route: 042
     Dates: start: 20111017, end: 20111017
  3. PIRITON [Suspect]
     Indication: PREMEDICATION
     Dosage: 10 MG, UNK
     Route: 042
     Dates: start: 20111017, end: 20111017
  4. OMEPRAZOLE [Concomitant]
  5. RAMIPRIL [Concomitant]
  6. TRAMADOL [Concomitant]

REACTIONS (5)
  - Abnormal behaviour [Recovered/Resolved]
  - Swelling face [Recovered/Resolved]
  - Hypoaesthesia [Recovered/Resolved]
  - Speech disorder [Recovered/Resolved]
  - Urticaria [Recovered/Resolved]
